FAERS Safety Report 10678607 (Version 1)
Quarter: 2014Q4

REPORT INFORMATION
  Report Type: Spontaneous
  Country: JP (occurrence: None)
  Receive Date: 20141223
  Receipt Date: 20141223
  Transmission Date: 20150529
  Serious: Yes (Other)
  Sender: FDA-Public Use
  Company Number: JP-ALKEM-000781

PATIENT
  Sex: Female

DRUGS (3)
  1. METFORMINE [Suspect]
     Active Substance: METFORMIN HYDROCHLORIDE
     Indication: HYPERGLYCAEMIA
     Route: 064
  2. INSULIN LISPRO(INSULIN LISPRO) [Suspect]
     Active Substance: INSULIN LISPRO
     Indication: HYPERGLYCAEMIA
     Route: 064
  3. ISOPHANE INSULIN [Suspect]
     Active Substance: INSULIN NOS
     Indication: HYPERGLYCAEMIA
     Route: 064

REACTIONS (3)
  - Small for dates baby [None]
  - Hypoglycaemia neonatal [None]
  - Maternal drugs affecting foetus [None]
